FAERS Safety Report 9713707 (Version 2)
Quarter: 2013Q4

REPORT INFORMATION
  Report Type: Spontaneous
  Country: US (occurrence: US)
  Receive Date: 20131126
  Receipt Date: 20131212
  Transmission Date: 20140711
  Serious: Yes (Hospitalization)
  Sender: FDA-Public Use
  Company Number: US-PFIZER INC-2013333124

PATIENT
  Age: 64 Year
  Sex: Male

DRUGS (2)
  1. REVATIO [Suspect]
     Indication: PULMONARY HYPERTENSION
     Dosage: 20 MG, UNK
     Dates: start: 20130905
  2. REVATIO [Suspect]
     Indication: CARDIAC FAILURE CONGESTIVE

REACTIONS (1)
  - Cardiac disorder [Unknown]
